FAERS Safety Report 22645517 (Version 2)
Quarter: 2024Q2

REPORT INFORMATION
  Report Type: Spontaneous
  Country: FR (occurrence: FR)
  Receive Date: 20230627
  Receipt Date: 20240410
  Transmission Date: 20240715
  Serious: Yes (Other)
  Sender: FDA-Public Use
  Company Number: FR-AFSSAPS-DJ2023000484

PATIENT
  Age: 83 Year
  Sex: Male

DRUGS (2)
  1. SERTRALINE [Suspect]
     Active Substance: SERTRALINE HYDROCHLORIDE
     Indication: Product used for unknown indication
     Dosage: 50 MILLIGRAM, DAILY
     Route: 048
     Dates: start: 202211
  2. KEPPRA [Suspect]
     Active Substance: LEVETIRACETAM
     Indication: Epilepsy
     Dosage: 1500 MILLIGRAM, DAILY
     Route: 048
     Dates: start: 202211

REACTIONS (1)
  - Aggression [Not Recovered/Not Resolved]

NARRATIVE: CASE EVENT DATE: 20221201
